FAERS Safety Report 11050220 (Version 1)
Quarter: 2015Q2

REPORT INFORMATION
  Report Type: Spontaneous
  Country: US (occurrence: US)
  Receive Date: 20150421
  Receipt Date: 20150421
  Transmission Date: 20150821
  Serious: Yes (Hospitalization, Other)
  Sender: FDA-Public Use
  Company Number: US-AMGEN-USASP2015037126

PATIENT
  Age: 86 Year
  Sex: Female

DRUGS (3)
  1. ENBREL [Suspect]
     Active Substance: ETANERCEPT
     Indication: RHEUMATOID ARTHRITIS
     Dosage: 50 MG, QWK
     Route: 065
  2. COUMADIN [Suspect]
     Active Substance: WARFARIN SODIUM
     Indication: PRODUCT USED FOR UNKNOWN INDICATION
     Dosage: 7.5 MG ON MONDAY, WEDNESDAY, FRIDAY, ALTERNATE DAYS 5MG
     Route: 065
  3. MONOPRIL [Concomitant]
     Active Substance: FOSINOPRIL SODIUM
     Indication: SKIN DISORDER
     Dosage: UNK

REACTIONS (7)
  - Malaise [Recovered/Resolved]
  - Melaena [Recovered/Resolved]
  - Psoriasis [Not Recovered/Not Resolved]
  - Sleep disorder [Recovered/Resolved]
  - Psoriatic arthropathy [Not Recovered/Not Resolved]
  - Rheumatoid arthritis [Not Recovered/Not Resolved]
  - Dyspnoea [Recovered/Resolved]
